FAERS Safety Report 9046376 (Version 1)
Quarter: 2013Q1

REPORT INFORMATION
  Report Type: Spontaneous
  Country: US (occurrence: None)
  Receive Date: 20130128
  Receipt Date: 20130128
  Transmission Date: 20140127
  Serious: Yes (Death, Hospitalization)
  Sender: FDA-Public Use
  Company Number: None

PATIENT
  Sex: Male
  Weight: 84 kg

DRUGS (2)
  1. EVEROLIMUS (AFINITOR, RAD-001) [Suspect]
     Dates: start: 20120924
  2. SANDOSTATIN [Suspect]
     Dates: start: 20120925

REACTIONS (6)
  - Metastatic carcinoid tumour [None]
  - Malignant neoplasm progression [None]
  - Hepatorenal syndrome [None]
  - Disease progression [None]
  - Renal failure [None]
  - Toxicity to various agents [None]
